FAERS Safety Report 8225933-X (Version None)
Quarter: 2012Q1

REPORT INFORMATION
  Report Type: 
  Country: None (occurrence: None)
  Receive Date: 20120321
  Receipt Date: 20111013
  Transmission Date: 20120608
  Serious: Yes (Hospitalization)
  Sender: FDA-Public Use
  Company Number: US-ROCHE-1046193

PATIENT
  Age: 77 Year
  Sex: Female
  Weight: 72.3 kg

DRUGS (4)
  1. TORASEMIDE [Suspect]
     Indication: HYPERTENSION
     Route: 048
     Dates: start: 20090101, end: 20110621
  2. NEBIVOLOL [Suspect]
     Indication: HYPERTENSION
     Route: 048
     Dates: start: 20110602, end: 20110621
  3. CRIZOTINIB [Suspect]
     Indication: LUNG NEOPLASM MALIGNANT
     Route: 048
     Dates: start: 20110602, end: 20110622
  4. VALSARTAN [Suspect]
     Indication: HYPERTENSION
     Dates: start: 20090101, end: 20110621

REACTIONS (2)
  - RENAL FAILURE ACUTE [None]
  - ATRIAL FIBRILLATION [None]
